FAERS Safety Report 5782395-X (Version None)
Quarter: 2008Q2

REPORT INFORMATION
  Report Type: 
  Country: None (occurrence: None)
  Receive Date: 20080623
  Receipt Date: 20080611
  Transmission Date: 20081010
  Serious: Yes (Hospitalization, Other)
  Sender: FDA-Public Use
  Company Number: VE-PFIZER INC-2008048915

PATIENT
  Sex: Female

DRUGS (4)
  1. CHANTIX [Suspect]
     Indication: SMOKING CESSATION THERAPY
     Route: 048
     Dates: start: 20080414, end: 20080601
  2. DIFENAC [Concomitant]
     Indication: ANTIINFLAMMATORY THERAPY
     Route: 048
     Dates: start: 19990101, end: 20080601
  3. PLAVIX [Concomitant]
     Route: 048
     Dates: start: 19990101, end: 20080601
  4. ALL OTHER THERAPEUTIC PRODUCTS [Concomitant]
     Route: 048
     Dates: start: 19990101, end: 20080601

REACTIONS (5)
  - DIARRHOEA [None]
  - GASTRIC DISORDER [None]
  - GASTRITIS [None]
  - PYLORIC STENOSIS [None]
  - VOMITING [None]
